FAERS Safety Report 5000280-8 (Version None)
Quarter: 2006Q2

REPORT INFORMATION
  Report Type: 
  Country: None (occurrence: None)
  Receive Date: 20060511
  Receipt Date: 20050105
  Transmission Date: 20061013
  Serious: Yes (Hospitalization, Other)
  Sender: FDA-Public Use
  Company Number: US-MERCK-0501USA00511

PATIENT
  Age: 79 Year
  Sex: Female
  Weight: 108 kg

DRUGS (3)
  1. VIOXX [Suspect]
     Indication: ARTHRITIS
     Route: 048
     Dates: start: 20010401, end: 20040901
  2. HYDROCHLOROTHIAZIDE [Concomitant]
     Route: 048
  3. COZAAR [Concomitant]
     Route: 048

REACTIONS (6)
  - ARRHYTHMIA [None]
  - ARTHROPATHY [None]
  - BRADYCARDIA [None]
  - BUNDLE BRANCH BLOCK [None]
  - CEREBROVASCULAR ACCIDENT [None]
  - OSTEOARTHRITIS [None]
